FAERS Safety Report 16133939 (Version 2)
Quarter: 2019Q3

REPORT INFORMATION
  Report Type: Spontaneous
  Country: US (occurrence: US)
  Receive Date: 20190329
  Receipt Date: 20190923
  Transmission Date: 20191004
  Serious: No
  Sender: FDA-Public Use
  Company Number: US-MYLANLABS-2019M1021717

PATIENT
  Age: 61 Year
  Sex: Male

DRUGS (1)
  1. THIOTHIXENE CAPSULES, USP [Suspect]
     Active Substance: THIOTHIXENE
     Indication: BIPOLAR DISORDER
     Dosage: 10 MILLIGRAM
     Route: 048

REACTIONS (3)
  - Mood swings [Unknown]
  - Somnolence [Not Recovered/Not Resolved]
  - Irritability [Unknown]

NARRATIVE: CASE EVENT DATE: 20190305
